FAERS Safety Report 16088407 (Version 1)
Quarter: 2019Q1

REPORT INFORMATION
  Report Type: Spontaneous
  Country: FR (occurrence: FR)
  Receive Date: 20190319
  Receipt Date: 20190319
  Transmission Date: 20190418
  Serious: Yes (Hospitalization, Other)
  Sender: FDA-Public Use
  Company Number: FR-AUROBINDO-AUR-APL-2019-015241

PATIENT

DRUGS (8)
  1. ZELITREX [Suspect]
     Active Substance: VALACYCLOVIR HYDROCHLORIDE
     Indication: PROPHYLAXIS
     Dosage: 2 DOSAGE FORM, ONCE A DAY
     Route: 048
     Dates: start: 20170510
  2. CORTANCYL [Suspect]
     Active Substance: PREDNISONE
     Indication: ACUTE LEUKAEMIA
     Dosage: 85 MILLIGRAM, ONCE A DAY
     Route: 048
     Dates: start: 20180711, end: 20180717
  3. VINCRISTINE SULFATE. [Concomitant]
     Active Substance: VINCRISTINE SULFATE
     Indication: PRODUCT USED FOR UNKNOWN INDICATION
     Dosage: UNK
     Route: 065
  4. ESOMEPRAZOLE. [Suspect]
     Active Substance: ESOMEPRAZOLE MAGNESIUM
     Indication: GASTRIC ULCER HAEMORRHAGE
     Dosage: 1 DOSAGE FORM, ONCE A DAY
     Route: 048
     Dates: start: 20180711, end: 20180717
  5. WELLVONE [Suspect]
     Active Substance: ATOVAQUONE
     Indication: PROPHYLAXIS
     Dosage: 1 DOSAGE FORM, ONCE A DAY
     Route: 048
     Dates: start: 20170510, end: 20180727
  6. PURINETHOL [Suspect]
     Active Substance: MERCAPTOPURINE
     Indication: ACUTE LEUKAEMIA
     Dosage: 3 DOSAGE FORM, ONCE A DAY
     Route: 048
     Dates: start: 20171031, end: 20180727
  7. OPTIMIZETTE [Suspect]
     Active Substance: DESOGESTREL
     Indication: CONTRACEPTION
     Dosage: 1 DOSAGE FORM, ONCE A DAY
     Route: 048
  8. METHOTREXATE. [Suspect]
     Active Substance: METHOTREXATE
     Indication: ACUTE LEUKAEMIA
     Dosage: 18 DOSAGE FORM, EVERY WEEK
     Route: 048
     Dates: start: 20171031, end: 20180727

REACTIONS (2)
  - Cell death [Recovering/Resolving]
  - Pancreatitis acute [Recovering/Resolving]

NARRATIVE: CASE EVENT DATE: 201807
